FAERS Safety Report 12343793 (Version 1)
Quarter: 2016Q2

REPORT INFORMATION
  Report Type: Spontaneous
  Country: ES (occurrence: ES)
  Receive Date: 20160507
  Receipt Date: 20160507
  Transmission Date: 20160815
  Serious: Yes (Other)
  Sender: FDA-Public Use
  Company Number: ES-MACLEODS PHARMACEUTICALS US LTD-MAC2016002719

PATIENT

DRUGS (2)
  1. LEVOFLOXACIN. [Suspect]
     Active Substance: LEVOFLOXACIN
     Indication: RESPIRATORY TRACT INFECTION
     Dosage: 500 MG
     Route: 048
  2. ACENOCOUMAROL [Interacting]
     Active Substance: ACENOCOUMAROL
     Indication: THROMBOSIS PROPHYLAXIS
     Dosage: UNK
     Route: 065

REACTIONS (2)
  - International normalised ratio increased [Recovered/Resolved]
  - Drug interaction [Recovered/Resolved]
